FAERS Safety Report 4442697-6 (Version None)
Quarter: 2004Q3

REPORT INFORMATION
  Report Type: 
  Country: None (occurrence: None)
  Receive Date: 20040903
  Receipt Date: 20040715
  Transmission Date: 20050211
  Serious: Yes (Other)
  Sender: FDA-Public Use
  Company Number: 2004UW12755

PATIENT
  Age: 84 Year
  Sex: Male
  Weight: 77.1115 kg

DRUGS (5)
  1. CRESTOR [Suspect]
     Indication: BLOOD CHOLESTEROL INCREASED
     Dosage: 10 MG DAILY PO
     Route: 048
     Dates: start: 20040101
  2. GLUCOTROL XL [Suspect]
     Dosage: 10 MG
  3. MULTIVITAMIN [Concomitant]
  4. ASPIRIN [Concomitant]
  5. ATACAND [Concomitant]

REACTIONS (1)
  - STOOL ANALYSIS ABNORMAL [None]
